FAERS Safety Report 18824078 (Version 1)
Quarter: 2021Q1

REPORT INFORMATION
  Report Type: Report from Study
  Country: US (occurrence: US)
  Receive Date: 20210202
  Receipt Date: 20210202
  Transmission Date: 20210419
  Serious: Yes (Other)
  Sender: FDA-Public Use
  Company Number: US-JNJFOC-20210134711

PATIENT
  Sex: Female
  Weight: 72.64 kg

DRUGS (2)
  1. OPSUMIT [Suspect]
     Active Substance: MACITENTAN
     Indication: PULMONARY HYPERTENSION
     Route: 048
  2. TYVASO [Concomitant]
     Active Substance: TREPROSTINIL

REACTIONS (1)
  - Hepatic cirrhosis [Unknown]
